FAERS Safety Report 7319532-1 (Version None)
Quarter: 2011Q1

REPORT INFORMATION
  Report Type: 
  Country: None (occurrence: None)
  Receive Date: 20110228
  Receipt Date: 20100615
  Transmission Date: 20110831
  Serious: No
  Sender: FDA-Public Use
  Company Number: A0858395A

PATIENT
  Age: 63 Year
  Sex: Female

DRUGS (5)
  1. LAMICTAL [Suspect]
     Dosage: 25MG UNKNOWN
     Route: 048
  2. ZOLOFT [Concomitant]
     Indication: POST-TRAUMATIC STRESS DISORDER
     Route: 048
     Dates: start: 20090109
  3. MACRODANTIN [Suspect]
     Indication: URINARY TRACT INFECTION
  4. ATIVAN [Concomitant]
     Indication: ANXIETY
     Route: 048
  5. TRAZODONE [Concomitant]
     Indication: INSOMNIA
     Route: 048

REACTIONS (4)
  - VISION BLURRED [None]
  - JOINT SWELLING [None]
  - PRURITUS [None]
  - ARTHRALGIA [None]
